FAERS Safety Report 12461157 (Version 1)
Quarter: 2016Q2

REPORT INFORMATION
  Report Type: Spontaneous
  Country: US (occurrence: US)
  Receive Date: 20160613
  Receipt Date: 20160613
  Transmission Date: 20160815
  Serious: No
  Sender: FDA-Public Use
  Company Number: US-US WORLDMEDS, LLC-USW201602-000209

PATIENT
  Age: 74 Year
  Sex: Female
  Weight: 51.71 kg

DRUGS (8)
  1. RANITIDINE. [Concomitant]
     Active Substance: RANITIDINE
  2. AZILECT [Concomitant]
     Active Substance: RASAGILINE MESYLATE
  3. GABAPENTIN. [Concomitant]
     Active Substance: GABAPENTIN
  4. CARBIDOPA. [Concomitant]
     Active Substance: CARBIDOPA
  5. APOKYN [Suspect]
     Active Substance: APOMORPHINE HYDROCHLORIDE
     Indication: PARKINSON^S DISEASE
     Route: 058
     Dates: start: 20150922, end: 20160125
  6. APOKYN [Suspect]
     Active Substance: APOMORPHINE HYDROCHLORIDE
     Route: 058
     Dates: start: 20150626, end: 20150922
  7. CELEXA [Concomitant]
     Active Substance: CITALOPRAM HYDROBROMIDE
  8. HYDROCODONE [Concomitant]
     Active Substance: HYDROCODONE

REACTIONS (3)
  - Flushing [Recovering/Resolving]
  - Erythema [Recovering/Resolving]
  - Drug ineffective [Unknown]

NARRATIVE: CASE EVENT DATE: 201509
